FAERS Safety Report 8550383-6 (Version None)
Quarter: 2012Q3

REPORT INFORMATION
  Report Type: 
  Country: None (occurrence: None)
  Receive Date: 20120730
  Receipt Date: 20120723
  Transmission Date: 20120928
  Serious: No
  Sender: FDA-Public Use
  Company Number: US-009507513-1207USA011161

PATIENT

DRUGS (2)
  1. CLARITIN [Suspect]
     Indication: MEDICAL OBSERVATION
  2. CLARITIN [Suspect]
     Indication: PRURITUS
     Dosage: UNK, UNKNOWN
     Route: 048
     Dates: start: 20120721

REACTIONS (1)
  - DRUG INEFFECTIVE FOR UNAPPROVED INDICATION [None]
